FAERS Safety Report 18151263 (Version 2)
Quarter: 2020Q3

REPORT INFORMATION
  Report Type: Spontaneous
  Country: US (occurrence: US)
  Receive Date: 20200814
  Receipt Date: 20200825
  Transmission Date: 20201103
  Serious: No
  Sender: FDA-Public Use
  Company Number: US-TEVA-2020-US-1814146

PATIENT
  Age: 51 Year
  Sex: Female
  Weight: 72.5 kg

DRUGS (1)
  1. FENTANYL CITRATE. [Suspect]
     Active Substance: FENTANYL CITRATE
     Indication: THUNDERCLAP HEADACHE
     Dosage: 1200 MCG UPTO 4 TIMES A DAY; HIGHEST DOSE WAS UPTO 1600 MCG UP TO 8 TIMES A DAY
     Route: 048

REACTIONS (2)
  - Tooth loss [Not Recovered/Not Resolved]
  - Product use in unapproved indication [Unknown]
